FAERS Safety Report 5122292-6 (Version None)
Quarter: 2006Q4

REPORT INFORMATION
  Report Type: 
  Country: None (occurrence: None)
  Receive Date: 20061003
  Receipt Date: 20060918
  Transmission Date: 20070319
  Serious: Yes (Death)
  Sender: FDA-Public Use
  Company Number: 2006S1008872

PATIENT
  Age: 65 Year
  Sex: Female

DRUGS (9)
  1. CLOZAPINE [Suspect]
     Dosage: 100 MG;QD;PO
     Route: 048
     Dates: start: 20060101, end: 20060901
  2. EPOGEN [Concomitant]
  3. IRON [Concomitant]
  4. BUMETANIDE [Concomitant]
  5. DOCUSATE [Concomitant]
  6. LEVOTHYROXINE SODIUM [Concomitant]
  7. CALCIUM GLUCONATE [Concomitant]
  8. GLYCERYL TRINITRATE [Concomitant]
  9. POTASSIUM [Concomitant]

REACTIONS (1)
  - DEATH [None]
